FAERS Safety Report 7364608-6 (Version None)
Quarter: 2011Q1

REPORT INFORMATION
  Report Type: 
  Country: None (occurrence: None)
  Receive Date: 20110321
  Receipt Date: 20110310
  Transmission Date: 20110831
  Serious: Yes (Hospitalization)
  Sender: FDA-Public Use
  Company Number: ZA-JNJFOC-20101106234

PATIENT
  Age: 63 Year
  Sex: Female
  Weight: 61 kg

DRUGS (7)
  1. MELA-CAL [Concomitant]
     Indication: MEDICAL DIET
     Route: 048
  2. COXFLAM [Concomitant]
     Indication: RHEUMATOID ARTHRITIS
     Route: 048
  3. NEXIUM [Concomitant]
     Indication: NAUSEA
     Route: 048
  4. GOLIMUMAB [Suspect]
     Indication: RHEUMATOID ARTHRITIS
     Route: 058
  5. METHOTREXATE [Concomitant]
     Indication: RHEUMATOID ARTHRITIS
     Route: 048
  6. AMLODIPINE BESYLATE [Concomitant]
     Indication: HYPERTENSION
     Route: 048
  7. FOLIC ACID [Concomitant]
     Indication: RHEUMATOID ARTHRITIS
     Route: 048

REACTIONS (1)
  - PNEUMONITIS [None]
